FAERS Safety Report 7080491-0 (Version None)
Quarter: 2010Q4

REPORT INFORMATION
  Report Type: 
  Country: None (occurrence: None)
  Receive Date: 20101103
  Receipt Date: 20101025
  Transmission Date: 20110411
  Serious: Yes (Hospitalization)
  Sender: FDA-Public Use
  Company Number: FR-WYE-H18475510

PATIENT
  Sex: Male

DRUGS (3)
  1. EUPANTOL [Suspect]
     Dosage: UNKNOWN
     Route: 048
     Dates: start: 20100516, end: 20101004
  2. APROVEL [Suspect]
     Dosage: UNKNOWN
     Route: 048
     Dates: start: 20100902, end: 20101008
  3. CELLCEPT [Suspect]
     Dosage: UNKNOWN
     Route: 048
     Dates: start: 20100516, end: 20101004

REACTIONS (1)
  - NEUTROPENIA [None]
